FAERS Safety Report 6285881-1 (Version None)
Quarter: 2009Q3

REPORT INFORMATION
  Report Type: 
  Country: None (occurrence: None)
  Receive Date: 20090728
  Receipt Date: 20090721
  Transmission Date: 20100115
  Serious: Yes (Hospitalization)
  Sender: FDA-Public Use
  Company Number: US-ELI_LILLY_AND_COMPANY-US200907004742

PATIENT
  Sex: Female

DRUGS (7)
  1. HUMULIN 70/30 [Suspect]
     Dosage: 60 U, EACH MORNING
  2. HUMULIN 70/30 [Suspect]
     Dosage: 40 U, EACH EVENING
  3. HUMULIN 70/30 [Suspect]
     Dosage: 160 U, 2/D
  4. LISINOPRIL [Concomitant]
  5. FUROSEMIDE [Concomitant]
  6. HYDROCODONE [Concomitant]
  7. CELEBREX [Concomitant]

REACTIONS (1)
  - DIABETES MELLITUS INADEQUATE CONTROL [None]
